FAERS Safety Report 13761192 (Version 1)
Quarter: 2017Q3

REPORT INFORMATION
  Report Type: Spontaneous
  Country: JP (occurrence: JP)
  Receive Date: 20170717
  Receipt Date: 20170717
  Transmission Date: 20171127
  Serious: Yes (Hospitalization)
  Sender: FDA-Public Use
  Company Number: JP-HTU-2017JP013235

PATIENT
  Age: 72 Year
  Sex: Female
  Weight: 30 kg

DRUGS (5)
  1. TS-1 [Suspect]
     Active Substance: GIMERACIL\OTERACIL\TEGAFUR
     Dosage: 40 MG MORNING AND 20 MG EVENING, QD
     Route: 048
     Dates: start: 20170517
  2. ALOXI [Suspect]
     Active Substance: PALONOSETRON HYDROCHLORIDE
     Indication: PROPHYLAXIS OF NAUSEA AND VOMITING
     Dosage: 0.75 MG, QD
     Route: 042
     Dates: start: 20170426, end: 20170426
  3. LOXONIN [Suspect]
     Active Substance: LOXOPROFEN SODIUM
     Dosage: 60-180 MG, PRN
     Dates: start: 20170426
  4. OXALIPLATIN. [Concomitant]
     Active Substance: OXALIPLATIN
     Indication: RECTAL CANCER METASTATIC
     Dosage: 150 MG, QD
     Dates: start: 20170426, end: 20170426
  5. TS-1 [Suspect]
     Active Substance: GIMERACIL\OTERACIL\TEGAFUR
     Indication: RECTAL CANCER METASTATIC
     Dosage: 40 MG, BID, ON A 2-WEEK ON, 1-WEEK OFF SCHEDULE
     Route: 048
     Dates: start: 20170426, end: 20170429

REACTIONS (2)
  - Colitis ischaemic [Recovered/Resolved]
  - Constipation [Unknown]

NARRATIVE: CASE EVENT DATE: 20170501
